FAERS Safety Report 16353919 (Version 5)
Quarter: 2020Q4

REPORT INFORMATION
  Report Type: Report from Study
  Country: FR (occurrence: FR)
  Receive Date: 20190524
  Receipt Date: 20201005
  Transmission Date: 20210113
  Serious: Yes (Hospitalization)
  Sender: FDA-Public Use
  Company Number: FR-ROCHE-2287697

PATIENT
  Age: 83 Year
  Sex: Female
  Weight: 62 kg

DRUGS (6)
  1. VENETOCLAX. [Suspect]
     Active Substance: VENETOCLAX
     Indication: LYMPHOMA
     Dosage: MOST RECENT DOSE: 07/MAY/2019
     Route: 065
     Dates: start: 20190404
  2. ATEZOLIZUMAB. [Suspect]
     Active Substance: ATEZOLIZUMAB
     Indication: LYMPHOMA
     Dosage: MOST RECENT DOSE PRIOR TO EVENT ONSET ON 13/MAR/2019 AND 03/MAY/2019
     Route: 042
     Dates: start: 20190313
  3. VALACICLOVIR [Concomitant]
     Active Substance: VALACYCLOVIR HYDROCHLORIDE
  4. PENTAMIDINE [Concomitant]
     Active Substance: PENTAMIDINE
  5. BACTRIM [Concomitant]
     Active Substance: SULFAMETHOXAZOLE\TRIMETHOPRIM
  6. OBINUTUZUMAB. [Suspect]
     Active Substance: OBINUTUZUMAB
     Indication: LYMPHOMA
     Dosage: MOST RECENT DOSE PRIOR TO EVENT ONSET ON 12/MAR/2019 AND 02/MAY/2019
     Route: 065
     Dates: start: 20190312

REACTIONS (3)
  - Sepsis [Recovered/Resolved]
  - Tumour lysis syndrome [Recovered/Resolved]
  - Staphylococcal sepsis [Recovered/Resolved]

NARRATIVE: CASE EVENT DATE: 20190312
